FAERS Safety Report 9369045 (Version 2)
Quarter: 2013Q4

REPORT INFORMATION
  Report Type: Report from Study
  Country: BR (occurrence: BR)
  Receive Date: 20130626
  Receipt Date: 20131022
  Transmission Date: 20140711
  Serious: Yes (Hospitalization)
  Sender: FDA-Public Use
  Company Number: PHHY2013BR064889

PATIENT
  Age: 42 Year
  Sex: Female
  Weight: 57 kg

DRUGS (4)
  1. GILENYA [Suspect]
     Indication: MULTIPLE SCLEROSIS
     Dosage: 0.5 MG, QD
     Route: 048
     Dates: start: 201203, end: 201305
  2. LOSARTAN [Concomitant]
     Indication: HYPERTENSION
     Dosage: 50 MG, QD
     Route: 048
  3. B COMPLEX [Concomitant]
     Route: 048
  4. FOLIC ACID [Concomitant]
     Indication: WHITE BLOOD CELL COUNT DECREASED
     Dosage: 1 DF, QD
     Route: 048

REACTIONS (8)
  - Abdominal pain upper [Recovering/Resolving]
  - Multiple sclerosis relapse [Recovering/Resolving]
  - Neck pain [Recovering/Resolving]
  - Gait disturbance [Recovering/Resolving]
  - Asthenia [Recovering/Resolving]
  - Headache [Recovering/Resolving]
  - Eating disorder [Unknown]
  - Drug ineffective [Unknown]
